FAERS Safety Report 9298655 (Version 3)
Quarter: 2013Q3

REPORT INFORMATION
  Report Type: Report from Study
  Country: JP (occurrence: JP)
  Receive Date: 20130520
  Receipt Date: 20130703
  Transmission Date: 20140515
  Serious: Yes (Hospitalization)
  Sender: FDA-Public Use
  Company Number: JP-PFIZER INC-2013147010

PATIENT
  Age: 70 Year
  Sex: Male
  Weight: 58.4 kg

DRUGS (7)
  1. AXITINIB [Suspect]
     Indication: RENAL CELL CARCINOMA
     Dosage: 5 MG, 2X/DAY
     Route: 048
     Dates: start: 20100927, end: 20130505
  2. NORVASC [Concomitant]
     Indication: HYPERTENSION
     Dosage: 5.0 MG, 1X/DAY
     Route: 048
     Dates: start: 20121220, end: 20130513
  3. MICARDIS [Concomitant]
     Indication: HYPERTENSION
     Dosage: 20 MG, 1X/DAY
     Route: 048
     Dates: start: 20101026, end: 20130513
  4. THYRADIN S [Concomitant]
     Indication: HYPOTHYROIDISM
     Dosage: 50 UG, 1X/DAY
     Route: 048
     Dates: start: 20111122, end: 20130515
  5. BIOFERMIN [Concomitant]
     Indication: DIARRHOEA
     Dosage: 1 G, 3X/DAY
     Route: 048
     Dates: start: 20120206, end: 20130508
  6. MEVALOTIN [Concomitant]
     Indication: HYPERLIPIDAEMIA
     Dosage: 10 MG, 1X/DAY
     Route: 048
     Dates: start: 20130319
  7. LOPEMIN [Concomitant]
     Indication: DIARRHOEA
     Dosage: 1 MG, 2X/DAY
     Route: 048
     Dates: start: 20110831, end: 20130508

REACTIONS (2)
  - Second primary malignancy [Recovered/Resolved]
  - Bladder cancer [Recovered/Resolved]
